FAERS Safety Report 5676270-9 (Version None)
Quarter: 2008Q1

REPORT INFORMATION
  Report Type: 
  Country: None (occurrence: None)
  Receive Date: 20080321
  Receipt Date: 20080318
  Transmission Date: 20080703
  Serious: Yes (Other)
  Sender: FDA-Public Use
  Company Number: IN-BOEHRINGER INGELHEIM GMBH, GERMANY-2008-BP-04071RO

PATIENT
  Age: 51 Year
  Sex: Male

DRUGS (12)
  1. PILOCARPINE [Suspect]
     Indication: INTRAOCULAR PRESSURE INCREASED
     Route: 031
  2. TOPIRAMATE [Suspect]
     Indication: EPILEPSY
  3. CARBAMAZEPINE [Concomitant]
     Indication: EPILEPSY
  4. PHENYTOIN SODIUM [Concomitant]
     Indication: EPILEPSY
  5. PHENOBARBITONE IP [Concomitant]
     Indication: EPILEPSY
  6. TIMOLOL MALEATE [Concomitant]
     Indication: INTRAOCULAR PRESSURE INCREASED
     Route: 031
  7. DORZOLAMIDE [Concomitant]
     Indication: INTRAOCULAR PRESSURE INCREASED
     Route: 031
  8. BRIMONIDINE TARTRATE [Concomitant]
     Indication: INTRAOCULAR PRESSURE INCREASED
     Route: 031
  9. ACETAZOLAMIDE [Concomitant]
     Indication: INTRAOCULAR PRESSURE INCREASED
     Route: 048
  10. CORTICOSTEROIDS [Concomitant]
     Indication: ANGLE CLOSURE GLAUCOMA
     Route: 048
  11. CORTICOSTEROIDS [Concomitant]
     Route: 061
  12. CYCLOPENTOLATE HCL [Concomitant]
     Indication: ANGLE CLOSURE GLAUCOMA
     Route: 031

REACTIONS (6)
  - ANGLE CLOSURE GLAUCOMA [None]
  - BLINDNESS [None]
  - CATARACT [None]
  - CHOROIDAL DETACHMENT [None]
  - CORNEAL TOUCH [None]
  - DRUG TOXICITY [None]
